FAERS Safety Report 5074842-6 (Version None)
Quarter: 2006Q3

REPORT INFORMATION
  Report Type: 
  Country: None (occurrence: None)
  Receive Date: 20060804
  Receipt Date: 20060726
  Transmission Date: 20061208
  Serious: Yes (Other)
  Sender: FDA-Public Use
  Company Number: 2006092425

PATIENT
  Sex: Female

DRUGS (1)
  1. VISINE L.R. [Suspect]
     Indication: OCULAR HYPERAEMIA
     Dosage: OPHTHALMIC
     Route: 047
     Dates: end: 20060515

REACTIONS (1)
  - CATARACT OPERATION [None]
